FAERS Safety Report 6914801-9 (Version None)
Quarter: 2010Q3

REPORT INFORMATION
  Report Type: 
  Country: None (occurrence: None)
  Receive Date: 20100809
  Receipt Date: 20100726
  Transmission Date: 20110219
  Serious: Yes (Hospitalization)
  Sender: FDA-Public Use
  Company Number: SE-AMGEN-QUU428594

PATIENT
  Sex: Female

DRUGS (5)
  1. ENBREL [Suspect]
     Indication: RHEUMATOID ARTHRITIS
     Route: 058
     Dates: start: 20091105, end: 20100122
  2. CHLOROQUINE PHOSPHATE [Concomitant]
     Dosage: 250 MG
  3. PREDNISOLONE [Concomitant]
     Dosage: DOSE 5 MG
  4. SALAZOPYRIN [Concomitant]
     Dosage: DOSE 500 MG
  5. METHOTREXATE [Concomitant]
     Dosage: DOSE 2.5 MG

REACTIONS (3)
  - COUGH [None]
  - DYSPNOEA [None]
  - PULMONARY FIBROSIS [None]
